FAERS Safety Report 23047471 (Version 1)
Quarter: 2023Q4

REPORT INFORMATION
  Report Type: Report from Study
  Country: SE (occurrence: SE)
  Receive Date: 20231010
  Receipt Date: 20231010
  Transmission Date: 20240109
  Serious: No
  Sender: FDA-Public Use
  Company Number: SE-ABBVIE-4749199

PATIENT
  Age: 66 Year
  Sex: Female

DRUGS (9)
  1. PLACEBO [Suspect]
     Active Substance: UNSPECIFIED INGREDIENT
     Indication: Giant cell arteritis
     Route: 048
     Dates: start: 20220714
  2. PREDNISOLONE [Suspect]
     Active Substance: PREDNISOLONE
     Indication: Giant cell arteritis
     Dosage: PER CS OPEN-LABEL TAPER SCHEDULE
     Route: 048
     Dates: start: 20220714, end: 20220720
  3. PREDNISOLONE [Suspect]
     Active Substance: PREDNISOLONE
     Indication: Giant cell arteritis
     Dosage: 52-WK CS TAPER
     Route: 048
     Dates: start: 20220721
  4. DUOTREV [Concomitant]
     Indication: Glaucoma
     Dosage: 40 UG/ML
     Route: 021
     Dates: start: 20141202
  5. ALENDRONAT [Concomitant]
     Active Substance: ALENDRONATE SODIUM
     Indication: Osteoporosis prophylaxis
     Route: 048
     Dates: start: 20220608
  6. CALCIUM CARBONATE\CHOLECALCIFEROL [Concomitant]
     Active Substance: CALCIUM CARBONATE\CHOLECALCIFEROL
     Indication: Osteoporosis prophylaxis
     Dosage: 500/800 MG
     Route: 048
     Dates: start: 20220608
  7. OMEPRAZOLE [Concomitant]
     Active Substance: OMEPRAZOLE
     Indication: Gastrooesophageal reflux prophylaxis
     Route: 048
     Dates: start: 20220608, end: 20221129
  8. VAGIFERM [Concomitant]
     Indication: Postmenopause
     Route: 067
     Dates: start: 20060101
  9. ACETAMINOPHEN [Concomitant]
     Active Substance: ACETAMINOPHEN
     Indication: Arthritis
     Dosage: TIME INTERVAL: AS NECESSARY
     Route: 048
     Dates: start: 20220401

REACTIONS (1)
  - Vitreous floaters [Not Recovered/Not Resolved]

NARRATIVE: CASE EVENT DATE: 20220908
